FAERS Safety Report 9165203 (Version 1)
Quarter: 2013Q1

REPORT INFORMATION
  Report Type: Spontaneous
  Country: US (occurrence: US)
  Receive Date: 20130315
  Receipt Date: 20130315
  Transmission Date: 20140127
  Serious: Yes (Other)
  Sender: FDA-Public Use
  Company Number: US-ELI_LILLY_AND_COMPANY-US201303002253

PATIENT
  Sex: Male

DRUGS (5)
  1. FORTEO [Suspect]
     Indication: SPINAL FRACTURE
     Dosage: UNK UNK, QD
  2. FORTEO [Suspect]
     Dosage: 20 UG, QD
     Dates: start: 20130301
  3. ENBREL [Concomitant]
  4. ORENCIA [Concomitant]
  5. PREDNISONE [Concomitant]

REACTIONS (6)
  - Pelvic fracture [Unknown]
  - Spinal fracture [Unknown]
  - Spinal compression fracture [Unknown]
  - Pneumonia [Unknown]
  - Incorrect drug administration duration [Unknown]
  - Off label use [Unknown]
